FAERS Safety Report 18979880 (Version 1)
Quarter: 2021Q1

REPORT INFORMATION
  Report Type: Spontaneous
  Country: US (occurrence: US)
  Receive Date: 20210308
  Receipt Date: 20210308
  Transmission Date: 20210420
  Serious: No
  Sender: FDA-Public Use
  Company Number: US-TEVA-2021-US-1887163

PATIENT
  Sex: Female

DRUGS (1)
  1. HYDROXYZINE PAMOATE TEVA [Suspect]
     Active Substance: HYDROXYZINE PAMOATE
     Route: 065

REACTIONS (2)
  - Disease progression [Unknown]
  - Product dispensing error [Unknown]
